FAERS Safety Report 7769793-X (Version None)
Quarter: 2011Q3

REPORT INFORMATION
  Report Type: 
  Country: None (occurrence: None)
  Receive Date: 20110922
  Receipt Date: 20100826
  Transmission Date: 20111222
  Serious: No
  Sender: FDA-Public Use
  Company Number: US-ASTRAZENECA-2007UW26477

PATIENT
  Age: 18741 Day
  Sex: Female
  Weight: 75.7 kg

DRUGS (12)
  1. PERIACTIN [Concomitant]
  2. HALCION [Concomitant]
  3. NAVANE [Concomitant]
  4. REMERON [Concomitant]
  5. DOCUSATE [Concomitant]
  6. SEROQUEL [Suspect]
     Indication: DEPRESSION
     Route: 048
     Dates: start: 20051201, end: 20070101
  7. INSULIN [Concomitant]
  8. VISTARIL [Concomitant]
  9. LORTAB [Concomitant]
  10. AMBIEN [Concomitant]
  11. PREDNISONE [Concomitant]
     Dates: start: 20020101
  12. VASOTEC [Concomitant]

REACTIONS (9)
  - HYPERLIPIDAEMIA [None]
  - GASTROENTERITIS [None]
  - TYPE 2 DIABETES MELLITUS [None]
  - INSOMNIA [None]
  - DECREASED APPETITE [None]
  - ABDOMINAL PAIN [None]
  - HYPOGLYCAEMIA [None]
  - BACK PAIN [None]
  - ARTHROPOD BITE [None]
